FAERS Safety Report 5609472-8 (Version None)
Quarter: 2008Q1

REPORT INFORMATION
  Report Type: 
  Country: None (occurrence: None)
  Receive Date: 20080131
  Receipt Date: 20080124
  Transmission Date: 20080703
  Serious: Yes (Other)
  Sender: FDA-Public Use
  Company Number: FR-AVENTIS-200810357FR

PATIENT
  Age: 58 Year
  Sex: Female

DRUGS (2)
  1. KETEK [Suspect]
     Route: 048
     Dates: start: 20080118, end: 20080119
  2. KETEK [Suspect]
     Route: 048
     Dates: start: 20080120

REACTIONS (2)
  - OVERDOSE [None]
  - PHLEBITIS [None]
